FAERS Safety Report 23645589 (Version 3)
Quarter: 2024Q2

REPORT INFORMATION
  Report Type: Spontaneous
  Country: US (occurrence: US)
  Receive Date: 20240319
  Receipt Date: 20240430
  Transmission Date: 20240716
  Serious: Yes (Hospitalization, Other)
  Sender: FDA-Public Use
  Company Number: US-PFIZER INC-PV202400035525

PATIENT
  Age: 64 Year
  Sex: Male

DRUGS (1)
  1. INLYTA [Suspect]
     Active Substance: AXITINIB
     Dosage: UNK

REACTIONS (8)
  - Road traffic accident [Unknown]
  - Dialysis [Unknown]
  - Sepsis [Unknown]
  - Device related thrombosis [Recovered/Resolved]
  - Catheter site haemorrhage [Unknown]
  - Device related infection [Unknown]
  - Bacteraemia [Unknown]
  - Back disorder [Unknown]
